FAERS Safety Report 15121321 (Version 1)
Quarter: 2018Q3

REPORT INFORMATION
  Report Type: Spontaneous
  Country: US (occurrence: US)
  Receive Date: 20180709
  Receipt Date: 20180709
  Transmission Date: 20181010
  Serious: Yes (Other)
  Sender: FDA-Public Use
  Company Number: US-BAYER-2018-127970

PATIENT
  Age: 68 Year
  Sex: Male

DRUGS (21)
  1. METAXALONE. [Concomitant]
     Active Substance: METAXALONE
  2. SINEMET [Concomitant]
     Active Substance: CARBIDOPA\LEVODOPA
  3. LINZESS [Concomitant]
     Active Substance: LINACLOTIDE
  4. CARBIDOPA W/ENTACAPONE W/LEVODOPA [Suspect]
     Active Substance: CARBIDOPA\ENTACAPONE\LEVODOPA
     Dosage: UNK
     Dates: start: 20171023
  5. AZILECT [Concomitant]
     Active Substance: RASAGILINE MESYLATE
  6. TESTOSTERONE. [Concomitant]
     Active Substance: TESTOSTERONE
  7. VITAMIN B12 [Concomitant]
     Active Substance: CYANOCOBALAMIN
  8. MIRALAX [Suspect]
     Active Substance: POLYETHYLENE GLYCOL 3350
  9. SYMBICORT [Concomitant]
     Active Substance: BUDESONIDE\FORMOTEROL FUMARATE DIHYDRATE
  10. DOCUSATE [Concomitant]
     Active Substance: DOCUSATE
  11. MVI [Concomitant]
     Active Substance: VITAMINS
  12. QUININE [Concomitant]
     Active Substance: QUININE
  13. VITAMIN D3 [Concomitant]
     Active Substance: CHOLECALCIFEROL
  14. MELATONIN [Concomitant]
     Active Substance: MELATONIN
  15. CARBIDOPA W/ENTACAPONE W/LEVODOPA [Concomitant]
     Active Substance: CARBIDOPA\ENTACAPONE\LEVODOPA
  16. CAVERJECT [Concomitant]
     Active Substance: ALPROSTADIL
  17. ROPINIROLE. [Concomitant]
     Active Substance: ROPINIROLE
  18. CALCIUM D [Concomitant]
     Active Substance: CALCIUM\VITAMIN D
  19. ALEVE [Suspect]
     Active Substance: NAPROXEN SODIUM
     Indication: PRODUCT USED FOR UNKNOWN INDICATION
     Dosage: UNK
  20. CLONAZEPAM. [Concomitant]
     Active Substance: CLONAZEPAM
  21. FLAXSEED [Concomitant]
     Active Substance: FLAX SEED

REACTIONS (5)
  - Lumbosacral radiculopathy [Unknown]
  - On and off phenomenon [Unknown]
  - Feeling abnormal [Unknown]
  - Back pain [Unknown]
  - Stoma site haemorrhage [Unknown]

NARRATIVE: CASE EVENT DATE: 20180219
